FAERS Safety Report 16773376 (Version 1)
Quarter: 2019Q3

REPORT INFORMATION
  Report Type: Spontaneous
  Country: US (occurrence: US)
  Receive Date: 20190904
  Receipt Date: 20190904
  Transmission Date: 20191005
  Serious: No
  Sender: FDA-Public Use
  Company Number: US-PURDUE-USA-2019-0146511

PATIENT
  Age: 57 Year
  Sex: Male

DRUGS (2)
  1. OXYCODONE/ ACETAMINOPHEN TABLETS [Suspect]
     Active Substance: ACETAMINOPHEN\OXYCODONE HYDROCHLORIDE
     Indication: PAIN
     Dosage: 5/325 MG, BID
     Route: 048
  2. OXYCODONE/ ACETAMINOPHEN TABLETS [Suspect]
     Active Substance: ACETAMINOPHEN\OXYCODONE HYDROCHLORIDE
     Dosage: 5/325 MG, UNK
     Route: 048
     Dates: start: 201902, end: 20190220

REACTIONS (4)
  - Intervertebral disc protrusion [Unknown]
  - Insomnia [Unknown]
  - Muscle strain [Unknown]
  - Pain [Unknown]

NARRATIVE: CASE EVENT DATE: 20190207
